FAERS Safety Report 5992452-0 (Version None)
Quarter: 2008Q4

REPORT INFORMATION
  Report Type: 
  Country: None (occurrence: None)
  Receive Date: 20081211
  Receipt Date: 20080518
  Transmission Date: 20090506
  Serious: No
  Sender: FDA-Public Use
  Company Number: US-AMGEN-KDL280414

PATIENT
  Sex: Female

DRUGS (3)
  1. ENBREL [Suspect]
     Indication: PSORIATIC ARTHROPATHY
     Route: 058
     Dates: start: 20080103
  2. SULFASALAZINE [Concomitant]
     Route: 048
  3. UNSPECIFIED STEROIDS [Concomitant]

REACTIONS (1)
  - PSORIATIC ARTHROPATHY [None]
